FAERS Safety Report 23296668 (Version 1)
Quarter: 2023Q4

REPORT INFORMATION
  Report Type: Spontaneous
  Country: NO (occurrence: NO)
  Receive Date: 20231214
  Receipt Date: 20231214
  Transmission Date: 20240110
  Serious: Yes (Hospitalization, Other)
  Sender: FDA-Public Use
  Company Number: NO-NOVITIUMPHARMA-2023NONVP02166

PATIENT
  Age: 74 Year
  Sex: Female

DRUGS (4)
  1. DIGOXIN [Suspect]
     Active Substance: DIGOXIN
     Indication: Atrial flutter
  2. PRAZOSIN [Concomitant]
     Active Substance: PRAZOSIN
     Indication: Hypertension
  3. TELMISARTAN [Concomitant]
     Active Substance: TELMISARTAN
     Indication: Hypertension
  4. APIXABAN [Concomitant]
     Active Substance: APIXABAN
     Indication: Atrial flutter

REACTIONS (1)
  - BRASH syndrome [Recovered/Resolved]
